FAERS Safety Report 16515048 (Version 2)
Quarter: 2019Q3

REPORT INFORMATION
  Report Type: Report from Study
  Country: ES (occurrence: ES)
  Receive Date: 20190702
  Receipt Date: 20190710
  Transmission Date: 20191004
  Serious: Yes (Hospitalization)
  Sender: FDA-Public Use
  Company Number: ES-ROCHE-2341910

PATIENT
  Age: 62 Year
  Sex: Female
  Weight: 69.5 kg

DRUGS (11)
  1. MOTILIUM [Concomitant]
     Active Substance: DOMPERIDONE
     Indication: GASTROENTERITIS
     Route: 065
     Dates: start: 20181111
  2. PLACEBO [Suspect]
     Active Substance: UNSPECIFIED INGREDIENT
     Indication: PRIMARY PROGRESSIVE MULTIPLE SCLEROSIS
     Dosage: BLINDED OCRELIZUMAB INFUSIONS, ONCE EVERY SIX MONTHS (DUAL INFUSIONS SEPARATED BY 14 DAYS AT A SCHED
     Route: 042
     Dates: start: 20120829, end: 20151122
  3. AMBROXOL [Concomitant]
     Active Substance: AMBROXOL
     Indication: ASTHMA
     Route: 065
     Dates: start: 20170109
  4. PARACETAMOL [Concomitant]
     Active Substance: ACETAMINOPHEN
     Dosage: SUBSEQUENT DOSES ON: 12/SEP/2012, 13/FEB/2013, 27/FEB/2013, 31/JUL/2013, 14/AUG/2013, 22/JAN/2014, 0
     Route: 065
     Dates: start: 20120829
  5. ENANTYUM [Concomitant]
     Active Substance: DEXKETOPROFEN TROMETAMOL
     Indication: BACK PAIN
     Route: 065
     Dates: start: 20160118
  6. METHYLPREDNISOLONE. [Concomitant]
     Active Substance: METHYLPREDNISOLONE
     Route: 065
     Dates: start: 20190703, end: 20190705
  7. OCRELIZUMAB. [Suspect]
     Active Substance: OCRELIZUMAB
     Indication: PRIMARY PROGRESSIVE MULTIPLE SCLEROSIS
     Dosage: 300 MG ON DAY 1 AND 15 OF FIRST 24 WEEK CYCLES AND THEN SINGLE INFUSION OF 600 MG FOR EACH SUBSEQUEN
     Route: 042
     Dates: start: 20151123
  8. FAMPYRA [Suspect]
     Active Substance: DALFAMPRIDINE
     Indication: MULTIPLE SCLEROSIS
     Route: 065
     Dates: start: 20190103, end: 20190612
  9. METHYLPREDNISOLONE. [Concomitant]
     Active Substance: METHYLPREDNISOLONE
     Dosage: SUBSEQUENT DOSES ON: 12/SEP/2012, 13/FEB/2013, 27/FEB/2013, 31/JUL/2013, 14/AUG/2013, 22/JAN/2014, 0
     Route: 065
     Dates: start: 20120829
  10. CETIRIZINA [CETIRIZINE] [Concomitant]
     Dosage: SUBSEQUENT DOSES ON: 13/FEB/2013, 27/FEB/2013, 31/JUL/2013, 14/AUG/2013, 22/JAN/2014, 05/FEB/2014, 0
     Route: 065
     Dates: start: 20150617
  11. DAFLON [DIOSMIN;HESPERIDIN] [Concomitant]
     Indication: PERIPHERAL VENOUS DISEASE
     Route: 065
     Dates: start: 20150313

REACTIONS (1)
  - Encephalitis autoimmune [Not Recovered/Not Resolved]

NARRATIVE: CASE EVENT DATE: 201905
